FAERS Safety Report 7888589-1 (Version None)
Quarter: 2011Q4

REPORT INFORMATION
  Report Type: 
  Country: None (occurrence: None)
  Receive Date: 20111103
  Receipt Date: 20111101
  Transmission Date: 20120403
  Serious: No
  Sender: FDA-Public Use
  Company Number: US-PFIZER INC-2011267089

PATIENT
  Age: 62 Year
  Sex: Female

DRUGS (5)
  1. REMODULIN [Suspect]
     Indication: COR PULMONALE CHRONIC
     Dosage: 55.44 UG/KG 0.0 385 UG/KG,1
     Dates: start: 20110526
  2. SILDENAFIL [Concomitant]
     Dosage: UNK
  3. NEURONTIN [Suspect]
     Dosage: UNK
  4. ACETYLSALICYLIC ACID [Concomitant]
     Dosage: UNK
  5. TRACLEER [Concomitant]
     Dosage: UNK

REACTIONS (3)
  - SOMNOLENCE [None]
  - DIARRHOEA [None]
  - INJECTION SITE PAIN [None]
